FAERS Safety Report 9478072 (Version 2)
Quarter: 2013Q3

REPORT INFORMATION
  Report Type: Spontaneous
  Country: US (occurrence: US)
  Receive Date: 20130827
  Receipt Date: 20130920
  Transmission Date: 20140515
  Serious: Yes (Other)
  Sender: FDA-Public Use
  Company Number: US-JNJFOC-20130810346

PATIENT
  Age: 81 Year
  Sex: Male
  Weight: 74.39 kg

DRUGS (17)
  1. XARELTO [Suspect]
     Indication: CEREBROVASCULAR ACCIDENT PROPHYLAXIS
     Dosage: BEFORE DINNER
     Route: 048
     Dates: start: 20130705
  2. XARELTO [Suspect]
     Indication: ATRIAL FIBRILLATION
     Dosage: BEFORE DINNER
     Route: 048
     Dates: start: 20130705
  3. ARICEPT [Concomitant]
     Indication: HEADACHE
     Route: 048
     Dates: start: 2010
  4. ASCORBIC ACID [Concomitant]
     Indication: VITAMIN SUPPLEMENTATION
     Dosage: 500 (STRENGTH UNSPECIFIED)
     Route: 048
     Dates: start: 2012
  5. CITALOPRAM [Concomitant]
     Indication: CARDIAC DISORDER
     Dosage: AT BED TIME
     Route: 048
     Dates: start: 2010
  6. CITALOPRAM [Concomitant]
     Indication: SEDATIVE THERAPY
     Dosage: AT BED TIME
     Route: 048
     Dates: start: 2010
  7. FERROUS SULFATE [Concomitant]
     Route: 048
     Dates: start: 2012
  8. FLUTICASONE [Concomitant]
     Indication: PRODUCT USED FOR UNKNOWN INDICATION
     Route: 045
     Dates: start: 2012
  9. FUROSEMIDE [Concomitant]
     Indication: OEDEMA PERIPHERAL
     Dosage: 1-2 TABLETS ONCE IN A DAY
     Route: 048
     Dates: start: 2012
  10. FUROSEMIDE [Concomitant]
     Indication: FLUID RETENTION
     Dosage: 1-2 TABLETS ONCE IN A DAY
     Route: 048
     Dates: start: 2012
  11. GABAPENTIN [Concomitant]
     Route: 048
     Dates: start: 2012
  12. LANTUS [Concomitant]
     Indication: DIABETES MELLITUS
     Dosage: AT BED TIME
     Route: 065
     Dates: start: 2012
  13. HUMALOG [Concomitant]
     Indication: DIABETES MELLITUS
     Dosage: ON A SLIDING SCALE
     Route: 065
     Dates: start: 2012
  14. ISOSORBIDE [Concomitant]
     Route: 048
     Dates: start: 2012
  15. METOPROLOL [Concomitant]
     Route: 048
     Dates: start: 2012
  16. POTASSIUM [Concomitant]
     Indication: MUSCLE SPASMS
     Route: 048
  17. SPIRONOLACTONE [Concomitant]
     Indication: MINERAL SUPPLEMENTATION
     Route: 048
     Dates: start: 2012

REACTIONS (3)
  - Cardiac failure [Not Recovered/Not Resolved]
  - Medical device complication [Not Recovered/Not Resolved]
  - Sensory disturbance [Not Recovered/Not Resolved]
